FAERS Safety Report 6433324-7 (Version None)
Quarter: 2009Q4

REPORT INFORMATION
  Report Type: 
  Country: None (occurrence: None)
  Receive Date: 20091109
  Receipt Date: 20091103
  Transmission Date: 20100525
  Serious: Yes (Death)
  Sender: FDA-Public Use
  Company Number: PHHY2009MX48023

PATIENT
  Age: 84 Year
  Sex: Female

DRUGS (1)
  1. DIOVAN HCT [Suspect]
     Dosage: 1 TABLET PER DAY
     Route: 048
     Dates: start: 20050901

REACTIONS (2)
  - ARRHYTHMIA [None]
  - CEREBRAL INFARCTION [None]
